FAERS Safety Report 7718524-8 (Version None)
Quarter: 2011Q3

REPORT INFORMATION
  Report Type: 
  Country: None (occurrence: None)
  Receive Date: 20110830
  Receipt Date: 20110825
  Transmission Date: 20111222
  Serious: Yes (Hospitalization)
  Sender: FDA-Public Use
  Company Number: US-CEPHALON-2011004493

PATIENT
  Sex: Male
  Weight: 97 kg

DRUGS (5)
  1. TREANDA [Suspect]
     Indication: MULTIPLE MYELOMA
     Route: 041
     Dates: start: 20110607
  2. ASPIRIN [Concomitant]
     Dates: start: 20110607
  3. DEXAMETHASONE [Concomitant]
     Indication: MULTIPLE MYELOMA
     Dates: start: 20110607
  4. KYTRIL [Concomitant]
     Dates: start: 20110607
  5. LENALIDOMIDE [Concomitant]
     Indication: MULTIPLE MYELOMA
     Dates: start: 20110607

REACTIONS (1)
  - PNEUMONIA BACTERIAL [None]
